FAERS Safety Report 11762016 (Version 1)
Quarter: 2015Q4

REPORT INFORMATION
  Report Type: Spontaneous
  Country: JP (occurrence: JP)
  Receive Date: 20151120
  Receipt Date: 20151120
  Transmission Date: 20160304
  Serious: Yes (Death, Other)
  Sender: FDA-Public Use
  Company Number: JP-009507513-1511JPN011704

PATIENT
  Age: 81 Year
  Sex: Female
  Weight: 44 kg

DRUGS (8)
  1. CANCIDAS [Suspect]
     Active Substance: CASPOFUNGIN ACETATE
     Indication: FEBRILE NEUTROPENIA
     Dosage: 70 MG, QD
     Route: 041
     Dates: start: 20150128, end: 20150128
  2. MEROPENEM. [Concomitant]
     Active Substance: MEROPENEM
     Indication: FEBRILE NEUTROPENIA
     Dosage: 1 G, TID,OTHER PURPOSES: PNEUMONIA
     Route: 041
     Dates: start: 20150124, end: 20150128
  3. CRAVIT [Concomitant]
     Active Substance: LEVOFLOXACIN
     Indication: FEBRILE NEUTROPENIA
     Dosage: 500 MG, UNK,OTHER PURPOSES: PNEUMONIA
     Route: 041
     Dates: start: 20150128, end: 20150130
  4. PREDNISOLONE SODIUM SUCCINATE [Concomitant]
     Active Substance: PREDNISOLONE SODIUM SUCCINATE
     Indication: ORGANISING PNEUMONIA
     Dosage: 40 MG, QD
     Route: 051
     Dates: start: 20150128, end: 20150130
  5. ZYVOX [Concomitant]
     Active Substance: LINEZOLID
     Indication: FEBRILE NEUTROPENIA
     Dosage: 600 MG, BID,OTHER PURPOSES: PNEUMONIA
     Route: 051
     Dates: start: 20150124
  6. CALONAL [Concomitant]
     Active Substance: ACETAMINOPHEN
     Indication: PYREXIA
     Dosage: 400 MG, TID
     Route: 048
     Dates: start: 20150127, end: 20150128
  7. FINIBAX [Concomitant]
     Active Substance: DORIPENEM MONOHYDRATE
     Indication: FEBRILE NEUTROPENIA
     Dosage: 1 G, QD, OTHER PURPOSES: PNEUMONIA
     Route: 041
     Dates: start: 20150128, end: 20150128
  8. CANCIDAS [Suspect]
     Active Substance: CASPOFUNGIN ACETATE
     Indication: FEBRILE NEUTROPENIA
     Dosage: 50 MG, QD
     Route: 041
     Dates: start: 20150129, end: 20150130

REACTIONS (6)
  - C-reactive protein increased [Not Recovered/Not Resolved]
  - White blood cell count increased [Not Recovered/Not Resolved]
  - Liver disorder [Not Recovered/Not Resolved]
  - Pneumonia [Fatal]
  - Drug ineffective [Unknown]
  - Neutrophil count increased [Not Recovered/Not Resolved]

NARRATIVE: CASE EVENT DATE: 201501
